FAERS Safety Report 7876989-5 (Version None)
Quarter: 2011Q4

REPORT INFORMATION
  Report Type: 
  Country: None (occurrence: None)
  Receive Date: 20111031
  Receipt Date: 20111024
  Transmission Date: 20120403
  Serious: Yes (Other)
  Sender: FDA-Public Use
  Company Number: PHHY2011DE84504

PATIENT
  Sex: Male
  Weight: 73 kg

DRUGS (4)
  1. METOPROLOL SUCCINATE [Concomitant]
     Indication: CORONARY ARTERY DISEASE
     Dosage: 1 DF, QD
     Route: 048
  2. OMEPRAZOLE [Concomitant]
     Indication: PANCREATIC PSEUDOCYST
     Dosage: 1 DF, QD
     Route: 048
     Dates: start: 20080601
  3. METFORMIN HCL [Suspect]
     Indication: TYPE 2 DIABETES MELLITUS
     Dosage: 1 DF, BID
     Route: 048
     Dates: start: 20090926, end: 20110922
  4. GALVUS [Suspect]
     Indication: GLYCOSYLATED HAEMOGLOBIN INCREASED
     Dosage: 1 DF, QD
     Route: 048
     Dates: start: 20110712, end: 20110922

REACTIONS (2)
  - CHOLESTASIS [None]
  - ABDOMINAL PAIN [None]
